FAERS Safety Report 9392753 (Version 1)
Quarter: 2013Q3

REPORT INFORMATION
  Report Type: Spontaneous
  Country: US (occurrence: None)
  Receive Date: 20130708
  Receipt Date: 20130708
  Transmission Date: 20140515
  Serious: Yes (Life-Threatening)
  Sender: FDA-Public Use
  Company Number: None

PATIENT
  Age: 52 Year
  Sex: Female
  Weight: 106.2 kg

DRUGS (2)
  1. OXYCODONE [Suspect]
     Indication: PAIN
     Route: 048
     Dates: start: 20130626
  2. HYDROMORPHONE [Suspect]
     Indication: PAIN
     Route: 042
     Dates: start: 20130626

REACTIONS (4)
  - Cardio-respiratory arrest [None]
  - Unresponsive to stimuli [None]
  - Respiratory depression [None]
  - Bradycardia [None]
